FAERS Safety Report 4313640-5 (Version None)
Quarter: 2004Q1

REPORT INFORMATION
  Report Type: 
  Country: None (occurrence: None)
  Receive Date: 20040305
  Receipt Date: 20040226
  Transmission Date: 20041129
  Serious: Yes (Hospitalization)
  Sender: FDA-Public Use
  Company Number: US-JNJFOC-20040300055

PATIENT
  Age: 62 Year
  Sex: Female

DRUGS (6)
  1. DURAGESIC [Suspect]
     Indication: PAIN
     Dosage: 25 UG/HR, 1 IN 72 HOUR, TRANSDERMAL
     Route: 062
     Dates: start: 20030901, end: 20040226
  2. WATER PILL (DIURETICS) [Concomitant]
  3. PREDNISONE [Concomitant]
  4. VITAMINS (VITAMINS) [Concomitant]
  5. ASPIRIN [Concomitant]
  6. ^NOVAC' (?NORVASC) (AMLODIPINE BESILATE) [Concomitant]

REACTIONS (3)
  - CONDITION AGGRAVATED [None]
  - DYSPNOEA [None]
  - PNEUMONIA [None]
